FAERS Safety Report 19175641 (Version 2)
Quarter: 2021Q2

REPORT INFORMATION
  Report Type: Spontaneous
  Country: US (occurrence: US)
  Receive Date: 20210423
  Receipt Date: 20210428
  Transmission Date: 20210717
  Serious: Yes (Other)
  Sender: FDA-Public Use
  Company Number: US-ANIPHARMA-2021-US-006526

PATIENT
  Age: 81 Year
  Sex: Female
  Weight: 61.24 kg

DRUGS (2)
  1. NYSTATIN. [Suspect]
     Active Substance: NYSTATIN
     Route: 065
     Dates: start: 20200830, end: 20200910
  2. ARIMIDEX [Suspect]
     Active Substance: ANASTROZOLE
     Indication: BREAST CANCER
     Dosage: 1 TABLET DAILY
     Route: 048
     Dates: start: 20170704, end: 20210111

REACTIONS (6)
  - Stomatitis [Recovered/Resolved]
  - Candida infection [Recovering/Resolving]
  - Myalgia [Unknown]
  - Urticaria chronic [Recovered/Resolved]
  - Neuropathy peripheral [Unknown]
  - Visual impairment [Not Recovered/Not Resolved]

NARRATIVE: CASE EVENT DATE: 201912
